FAERS Safety Report 5475624-3 (Version None)
Quarter: 2007Q4

REPORT INFORMATION
  Report Type: 
  Country: None (occurrence: None)
  Receive Date: 20071003
  Receipt Date: 20070122
  Transmission Date: 20080405
  Serious: No
  Sender: FDA-Public Use
  Company Number: US-KINGPHARMUSA00001-K200700073

PATIENT

DRUGS (11)
  1. SONATA [Suspect]
     Indication: INSOMNIA
     Dosage: 10 MG, QHS
     Route: 048
     Dates: start: 20050314, end: 20050301
  2. SEROQUEL [Concomitant]
     Route: 048
  3. ALTACE [Concomitant]
     Indication: CARDIAC DISORDER
     Route: 048
  4. COREG [Concomitant]
     Indication: CARDIAC DISORDER
     Route: 048
  5. COZAAR [Concomitant]
     Indication: CARDIAC DISORDER
     Route: 048
  6. HYDROCHLOROTHIAZIDE [Concomitant]
     Indication: CARDIAC DISORDER
     Route: 048
  7. POTASSIUM CHLORIDE [Concomitant]
     Route: 048
  8. WARFARIN SODIUM [Concomitant]
     Route: 048
  9. NORVASC [Concomitant]
     Indication: CARDIAC DISORDER
     Route: 048
  10. MULTIVITAMIN /00831701/ [Concomitant]
     Indication: VITAMIN SUPPLEMENTATION
     Route: 048
  11. CALCIUM W/VITAMIN D NOS [Concomitant]
     Indication: VITAMIN SUPPLEMENTATION
     Dosage: UNK, UNK
     Route: 048

REACTIONS (5)
  - BALANCE DISORDER [None]
  - DIZZINESS [None]
  - DRUG INEFFECTIVE [None]
  - FALL [None]
  - MALAISE [None]
